FAERS Safety Report 4712582-0 (Version None)
Quarter: 2005Q3

REPORT INFORMATION
  Report Type: 
  Country: None (occurrence: None)
  Receive Date: 20050711
  Receipt Date: 20050630
  Transmission Date: 20060218
  Serious: Yes (Life-Threatening, Hospitalization)
  Sender: FDA-Public Use
  Company Number: 2005JP001202

PATIENT
  Age: 94 Year
  Sex: Male
  Weight: 52.3 kg

DRUGS (4)
  1. FUNGUARD (MICAFUNGIN) INJECTION [Suspect]
     Indication: PNEUMONIA
     Dosage: 75.00 MG, UID/QD, IV DRIP
     Route: 041
     Dates: start: 20050522, end: 20050525
  2. TARGOCID [Suspect]
     Indication: PNEUMONIA
     Dosage: SEE IMAGE
     Route: 041
     Dates: start: 20050516, end: 20050518
  3. TARGOCID [Suspect]
     Indication: PNEUMONIA
     Dosage: SEE IMAGE
     Route: 041
     Dates: start: 20050523, end: 20050524
  4. CEFTAZIDIME [Suspect]
     Indication: PNEUMONIA
     Dosage: 1.00 G, IV DRIP
     Route: 041
     Dates: start: 20050522, end: 20050526

REACTIONS (2)
  - INTERSTITIAL LUNG DISEASE [None]
  - RASH [None]
